FAERS Safety Report 5647442-4 (Version None)
Quarter: 2008Q1

REPORT INFORMATION
  Report Type: 
  Country: None (occurrence: None)
  Receive Date: 20080131
  Receipt Date: 20071113
  Transmission Date: 20080703
  Serious: No
  Sender: FDA-Public Use
  Company Number: 163-21880-07100653

PATIENT
  Age: 58 Year

DRUGS (3)
  1. REVLIMID [Suspect]
     Indication: MULTIPLE MYELOMA
     Dosage: 24 MG, 1 IN 1 D, ORAL
     Route: 048
     Dates: start: 20070914
  2. DEXAMETHASONE TAB [Concomitant]
  3. ACYCLOVIR [Concomitant]

REACTIONS (1)
  - CATARACT [None]
